FAERS Safety Report 4314079-9 (Version None)
Quarter: 2004Q1

REPORT INFORMATION
  Report Type: 
  Country: None (occurrence: None)
  Receive Date: 20040308
  Receipt Date: 20040308
  Transmission Date: 20041129
  Serious: Yes (Hospitalization)
  Sender: FDA-Public Use
  Company Number: None

PATIENT
  Age: 80 Year
  Sex: Male
  Weight: 108 kg

DRUGS (2)
  1. COUMADIN [Suspect]
  2. WARFARIN SODIUM [Suspect]

REACTIONS (2)
  - INTERNATIONAL NORMALISED RATIO INCREASED [None]
  - PHARMACEUTICAL PRODUCT COMPLAINT [None]
